FAERS Safety Report 13580893 (Version 1)
Quarter: 2017Q2

REPORT INFORMATION
  Report Type: Report from Study
  Country: None (occurrence: BR)
  Receive Date: 20170525
  Receipt Date: 20170525
  Transmission Date: 20170830
  Serious: Yes (Other)
  Sender: FDA-Public Use
  Company Number: BR-ABBVIE-17K-020-1985538-00

PATIENT
  Sex: Female
  Weight: 62 kg

DRUGS (3)
  1. HUMIRA [Suspect]
     Active Substance: ADALIMUMAB
     Indication: RHEUMATOID ARTHRITIS
     Route: 058
     Dates: start: 20150317, end: 20170515
  2. VELIJA [Concomitant]
     Active Substance: DULOXETINE HYDROCHLORIDE
     Indication: FIBROMYALGIA
     Route: 048
     Dates: start: 2015
  3. ISOFLAVON [Concomitant]
     Indication: HOT FLUSH
     Route: 048
     Dates: start: 201703

REACTIONS (3)
  - Dental caries [Unknown]
  - Bone loss [Not Recovered/Not Resolved]
  - Hepatotoxicity [Unknown]
